FAERS Safety Report 8743058 (Version 2)
Quarter: 2012Q4

REPORT INFORMATION
  Report Type: 
  Country: US (occurrence: US)
  Receive Date: 20120824
  Receipt Date: 20120905
  Transmission Date: 20130627
  Serious: Yes (Other)
  Sender: FDA-Public Use
  Company Number: US-PFIZER INC-2012205194

PATIENT
  Age: 46 Year
  Sex: Female
  Weight: 104.8 kg

DRUGS (4)
  1. ADVIL [Suspect]
     Dosage: UNK
  2. ADVIL LIQUIGEL [Suspect]
     Indication: HEADACHE
     Dosage: 200 mg, as needed
     Route: 048
     Dates: start: 201205, end: 20120814
  3. NORVASC [Concomitant]
     Indication: HYPERTENSION
     Dosage: UNK
  4. MICROGESTIN [Concomitant]
     Dosage: UNK

REACTIONS (8)
  - Pulmonary congestion [Recovering/Resolving]
  - Asthma [Unknown]
  - Product contamination [Unknown]
  - Dysphonia [Recovering/Resolving]
  - Wheezing [Not Recovered/Not Resolved]
  - Cough [Recovering/Resolving]
  - Increased upper airway secretion [Recovered/Resolved]
  - Dyspnoea [Recovering/Resolving]
